FAERS Safety Report 7508784-0 (Version None)
Quarter: 2011Q2

REPORT INFORMATION
  Report Type: 
  Country: None (occurrence: None)
  Receive Date: 20110527
  Receipt Date: 20110221
  Transmission Date: 20111010
  Serious: No
  Sender: FDA-Public Use
  Company Number: A0914664A

PATIENT
  Sex: Female

DRUGS (1)
  1. VENTOLIN [Suspect]

REACTIONS (2)
  - ORAL PAIN [None]
  - GLOSSODYNIA [None]
